FAERS Safety Report 17644670 (Version 1)
Quarter: 2020Q2

REPORT INFORMATION
  Report Type: Spontaneous
  Country: US (occurrence: US)
  Receive Date: 20200408
  Receipt Date: 20200408
  Transmission Date: 20200713
  Serious: Yes (Disabling)
  Sender: FDA-Public Use
  Company Number: None

PATIENT
  Age: 70 Year
  Sex: Female
  Weight: 70.31 kg

DRUGS (21)
  1. HYDROCODONE-ACETAMINOPHEN 5-325MG [Suspect]
     Active Substance: ACETAMINOPHEN\HYDROCODONE BITARTRATE
     Indication: NERVE BLOCK
     Dosage: ?          QUANTITY:5-325MG;OTHER FREQUENCY:4TO6HOURS;?
     Dates: start: 20191115, end: 20191118
  2. ACLOVIR 800 MG RATIOPHARM [Concomitant]
     Active Substance: ACYCLOVIR
  3. DILTIAZEM ER [Concomitant]
     Active Substance: DILTIAZEM
  4. VITAMIN C [Concomitant]
     Active Substance: ASCORBIC ACID
  5. HYDROCODONE-ACETAMINOPHEN 5-325MG [Suspect]
     Active Substance: ACETAMINOPHEN\HYDROCODONE BITARTRATE
     Indication: KNEE ARTHROPLASTY
     Dosage: ?          QUANTITY:5-325MG;OTHER FREQUENCY:4TO6HOURS;?
     Dates: start: 20191115, end: 20191118
  6. ALPRAZOLAM. [Concomitant]
     Active Substance: ALPRAZOLAM
  7. WOMAN MULTIVIT [Concomitant]
  8. OXYCODONE-ACETAMINOPHEN 5-325MG TABLETS [Suspect]
     Active Substance: ACETAMINOPHEN\OXYCODONE HYDROCHLORIDE
     Indication: SPINAL ANAESTHESIA
     Route: 048
     Dates: start: 20190915, end: 20191114
  9. GARLIC. [Concomitant]
     Active Substance: GARLIC
  10. OXYCODONE-ACETAMINOPHEN 5-325MG TABLETS [Suspect]
     Active Substance: ACETAMINOPHEN\OXYCODONE HYDROCHLORIDE
     Indication: NERVE BLOCK
     Route: 048
     Dates: start: 20190915, end: 20191114
  11. POTA CHLORIDE ER [Concomitant]
  12. CLOTRIMAZOLE. [Concomitant]
     Active Substance: CLOTRIMAZOLE
  13. PANTOPRAZOLE SOD [Concomitant]
     Active Substance: PANTOPRAZOLE SODIUM
  14. COD LIVER [Concomitant]
     Active Substance: COD LIVER OIL
  15. CORAL CALCIUM [Concomitant]
     Active Substance: DIETARY SUPPLEMENT
  16. CURAMIN [Concomitant]
     Active Substance: HERBALS
  17. OXYCODONE-ACETAMINOPHEN 5-325MG TABLETS [Suspect]
     Active Substance: ACETAMINOPHEN\OXYCODONE HYDROCHLORIDE
     Indication: KNEE ARTHROPLASTY
     Route: 048
     Dates: start: 20190915, end: 20191114
  18. LABETOLOL [Concomitant]
     Active Substance: LABETALOL HYDROCHLORIDE
  19. FLEX-MOVE [Concomitant]
  20. TIZANIDINE. [Concomitant]
     Active Substance: TIZANIDINE
  21. BOSWELLIA [Concomitant]
     Active Substance: DIETARY SUPPLEMENT\HERBALS

REACTIONS (10)
  - Drug ineffective [None]
  - Tremor [None]
  - Muscle atrophy [None]
  - Tenderness [None]
  - Soft tissue swelling [None]
  - Ligament disorder [None]
  - Gait inability [None]
  - Pain [None]
  - Joint stiffness [None]
  - Dyskinesia [None]

NARRATIVE: CASE EVENT DATE: 20190919
